FAERS Safety Report 4598186-1 (Version None)
Quarter: 2005Q1

REPORT INFORMATION
  Report Type: 
  Country: None (occurrence: None)
  Receive Date: 20050301
  Receipt Date: 20050301
  Transmission Date: 20050727
  Serious: Yes (Hospitalization)
  Sender: FDA-Public Use
  Company Number: None

PATIENT
  Sex: Male

DRUGS (19)
  1. WARFARIN SODIUM [Suspect]
     Indication: CEREBROVASCULAR ACCIDENT
     Dosage: 5 MG   DAILY   ORAL
     Route: 048
  2. VALDECOXIB [Suspect]
     Indication: PAIN
     Dosage: 10 MG   DAILY PRN   ORAL
     Route: 048
  3. ALBUTEROL [Concomitant]
  4. ASPIRIN [Concomitant]
  5. CITALOPRAM [Concomitant]
  6. AZITHROMYCIN [Concomitant]
  7. DONEPEZIL HCL [Concomitant]
  8. FELODIPINE [Concomitant]
  9. FLUNISOLIDE [Concomitant]
  10. FORMOTEROL [Concomitant]
  11. GUAIFENESIN [Concomitant]
  12. LEVOTHYROXINE [Concomitant]
  13. MECLIZINE [Concomitant]
  14. METOPROLOL [Concomitant]
  15. OMEPRAZOLE [Concomitant]
  16. OXYBUTYNIN [Concomitant]
  17. OXYCODONE AND ACETAMINOPHEN [Concomitant]
  18. TERAZOSIN [Concomitant]
  19. TRAZODONE HCL [Concomitant]

REACTIONS (3)
  - CEREBRAL HAEMORRHAGE [None]
  - DIFFICULTY IN WALKING [None]
  - FALL [None]
